FAERS Safety Report 11288631 (Version 1)
Quarter: 2015Q3

REPORT INFORMATION
  Report Type: Spontaneous
  Country: IE (occurrence: IE)
  Receive Date: 20150721
  Receipt Date: 20150721
  Transmission Date: 20151125
  Serious: Yes (Other)
  Sender: FDA-Public Use
  Company Number: IE-009507513-1507GBR008997

PATIENT

DRUGS (1)
  1. JANUMET [Suspect]
     Active Substance: METFORMIN HYDROCHLORIDE\SITAGLIPTIN PHOSPHATE
     Dosage: ROUTE VIA NASOGASTRIC TUBE

REACTIONS (2)
  - Incorrect route of drug administration [Unknown]
  - Cerebrovascular accident [Unknown]
